FAERS Safety Report 4500269-9 (Version None)
Quarter: 2004Q4

REPORT INFORMATION
  Report Type: 
  Country: None (occurrence: None)
  Receive Date: 20041112
  Receipt Date: 20041104
  Transmission Date: 20050328
  Serious: Yes (Life-Threatening)
  Sender: FDA-Public Use
  Company Number: US-MERCK-0411USA00796

PATIENT
  Age: 42 Year
  Sex: Female

DRUGS (2)
  1. MAXALT-MLT [Suspect]
     Indication: MIGRAINE
     Route: 048
     Dates: start: 19990101, end: 20040801
  2. CYCLOBENZAPRINE HYDROCHLORIDE [Concomitant]
     Route: 065

REACTIONS (2)
  - ANXIETY [None]
  - DRUG EXPOSURE DURING PREGNANCY [None]
